FAERS Safety Report 5254714-4 (Version None)
Quarter: 2007Q1

REPORT INFORMATION
  Report Type: 
  Country: None (occurrence: None)
  Receive Date: 20070227
  Receipt Date: 20070212
  Transmission Date: 20070707
  Serious: Yes (Life-Threatening)
  Sender: FDA-Public Use
  Company Number: 15090

PATIENT
  Age: 68 Year
  Sex: Male

DRUGS (6)
  1. CYTARABINE [Suspect]
     Indication: ACUTE MYELOID LEUKAEMIA
     Dosage: 20 MG/M2 PER_CYCLE SC
     Route: 058
     Dates: start: 20060823, end: 20060901
  2. CYTARABINE [Suspect]
     Indication: ACUTE MYELOID LEUKAEMIA
     Dosage: 20 MG/M2 PER_CYCLE SC
     Route: 058
     Dates: start: 20060925, end: 20061004
  3. CIPROFLOXACIN [Concomitant]
  4. BISEPTOL [Concomitant]
  5. ALLOPURINOL [Concomitant]
  6. FLUCONAZOLE [Concomitant]

REACTIONS (9)
  - AGRANULOCYTOSIS [None]
  - BLOOD CULTURE POSITIVE [None]
  - ENTEROCOCCAL INFECTION [None]
  - ESCHERICHIA INFECTION [None]
  - HAEMOGLOBIN DECREASED [None]
  - PNEUMONIA [None]
  - RED BLOOD CELL COUNT DECREASED [None]
  - SEPSIS [None]
  - THROMBOCYTOPENIA [None]
